FAERS Safety Report 13651026 (Version 1)
Quarter: 2017Q2

REPORT INFORMATION
  Report Type: Spontaneous
  Country: US (occurrence: US)
  Receive Date: 20170614
  Receipt Date: 20170614
  Transmission Date: 20170830
  Serious: Yes (Hospitalization, Other)
  Sender: FDA-Public Use
  Company Number: US-GLAXOSMITHKLINE-US2017089414

PATIENT
  Age: 49 Year
  Sex: Female

DRUGS (3)
  1. SEROQUEL XR [Concomitant]
     Active Substance: QUETIAPINE FUMARATE
  2. NORVASC [Concomitant]
     Active Substance: AMLODIPINE BESYLATE
  3. ADVAIR DISKUS [Suspect]
     Active Substance: FLUTICASONE PROPIONATE\SALMETEROL XINAFOATE
     Indication: CHRONIC OBSTRUCTIVE PULMONARY DISEASE
     Dosage: 1 PUFF(S), QD
     Route: 055
     Dates: start: 2012

REACTIONS (5)
  - Loss of consciousness [Recovered/Resolved]
  - Intentional product misuse [Unknown]
  - Ischaemic stroke [Recovered/Resolved]
  - Blood sodium decreased [Recovered/Resolved]
  - Underdose [Unknown]

NARRATIVE: CASE EVENT DATE: 20151229
